FAERS Safety Report 8334332-1 (Version None)
Quarter: 2012Q1

REPORT INFORMATION
  Report Type: 
  Country: None (occurrence: None)
  Receive Date: 20120329
  Receipt Date: 20111206
  Transmission Date: 20120608
  Serious: Yes (Other)
  Sender: FDA-Public Use
  Company Number: WAES 1112USA00626

PATIENT
  Age: 61 Year
  Sex: Male
  Weight: 95.2554 kg

DRUGS (5)
  1. ZOFRAN [Concomitant]
  2. DEXAMETHASONE [Concomitant]
  3. FOSAPREPITANT DIMEGLUMINE [Suspect]
     Indication: PROPHYLAXIS
     Dosage: 150 MG/1X/IV
     Route: 042
     Dates: start: 20110209, end: 20110209
  4. METOCLOPRAMIDE [Concomitant]
  5. PROMETHAZINE [Concomitant]

REACTIONS (3)
  - BLOOD PRESSURE INCREASED [None]
  - HOT FLUSH [None]
  - CHILLS [None]
